FAERS Safety Report 5647485-0 (Version None)
Quarter: 2008Q1

REPORT INFORMATION
  Report Type: 
  Country: None (occurrence: None)
  Receive Date: 20080228
  Receipt Date: 20080222
  Transmission Date: 20080703
  Serious: Yes (Other)
  Sender: FDA-Public Use
  Company Number: CHPA2008US03391

PATIENT
  Age: 49 Year
  Sex: Female

DRUGS (1)
  1. BUCKLEY'S MIXTURE (USA)(NCH)(DEXTROMETHORPHAN HYDROBROMIDE) SYRUP [Suspect]
     Indication: COUGH
     Dosage: ORAL
     Route: 048
     Dates: start: 20071201

REACTIONS (1)
  - BLOOD PRESSURE INCREASED [None]
